FAERS Safety Report 19735890 (Version 2)
Quarter: 2021Q3

REPORT INFORMATION
  Report Type: Spontaneous
  Country: US (occurrence: US)
  Receive Date: 20210823
  Receipt Date: 20210908
  Transmission Date: 20211014
  Serious: Yes (Other)
  Sender: FDA-Public Use
  Company Number: US-LUPIN PHARMACEUTICALS INC.-2021-15144

PATIENT
  Age: 76 Year
  Sex: Female
  Weight: 66.21 kg

DRUGS (10)
  1. MELOXICAM TABLETS USP, 7.5 MG [Suspect]
     Active Substance: MELOXICAM
     Dosage: 7.5 MILLIGRAM, QD, SHE TOOK IT 5 DAYS IN A ROW
     Route: 065
  2. MELOXICAM TABLETS USP, 7.5 MG [Suspect]
     Active Substance: MELOXICAM
     Dosage: 7.5 MILLIGRAM, QOD
     Route: 065
  3. ASPIRIN. [Concomitant]
     Active Substance: ASPIRIN
     Indication: PRODUCT USED FOR UNKNOWN INDICATION
     Dosage: 81 MG, QD (LOW DOSE)
     Route: 065
  4. ROSUVASTATIN. [Concomitant]
     Active Substance: ROSUVASTATIN
     Indication: BLOOD CHOLESTEROL ABNORMAL
     Dosage: 5 MILLIGRAM, QD
     Route: 065
  5. RAMIPRIL. [Concomitant]
     Active Substance: RAMIPRIL
     Indication: HYPERTENSION
     Dosage: UNK UNK, QD
     Route: 065
  6. GABAPENTIN. [Concomitant]
     Active Substance: GABAPENTIN
     Indication: PRODUCT USED FOR UNKNOWN INDICATION
     Dosage: SHE IS PRESCRIBED 4 CAPSULES A DAY, BUT TO SHE TAKES ONLY 2, IN A DAY
     Route: 065
  7. CELEBREX [Suspect]
     Active Substance: CELECOXIB
     Indication: ARTHRITIS
     Dosage: UNK
     Route: 065
  8. MELOXICAM TABLETS USP, 7.5 MG [Suspect]
     Active Substance: MELOXICAM
     Indication: ARTHRITIS
     Dosage: 7.5 MILLIGRAM, QD
     Route: 065
     Dates: start: 2003, end: 20210807
  9. PROGESTERONE. [Concomitant]
     Active Substance: PROGESTERONE
     Indication: PRODUCT USED FOR UNKNOWN INDICATION
     Dosage: 200 MILLIGRAM, QD
     Route: 065
  10. MELOXICAM TABLETS USP, 7.5 MG [Suspect]
     Active Substance: MELOXICAM
     Dosage: 7.5 MILLIGRAM ON LAST TUESDAY, WEDNESDAY AND THURSDAY (TAKEN 2 TABLETS OF THE STRENGTH 7.5 MG ONE IN
     Route: 065

REACTIONS (6)
  - Product dose omission issue [Unknown]
  - Incorrect dose administered [Unknown]
  - Heart rate increased [Recovered/Resolved]
  - Joint swelling [Recovered/Resolved]
  - Pain [Recovered/Resolved]
  - Hypertension [Recovered/Resolved]

NARRATIVE: CASE EVENT DATE: 20210807
